FAERS Safety Report 5371032-4 (Version None)
Quarter: 2007Q2

REPORT INFORMATION
  Report Type: 
  Country: None (occurrence: None)
  Receive Date: 20070626
  Receipt Date: 20070614
  Transmission Date: 20071010
  Serious: Yes (Hospitalization)
  Sender: FDA-Public Use
  Company Number: JP-PFIZER INC-2007046834

PATIENT
  Sex: Male

DRUGS (8)
  1. LIPITOR [Suspect]
     Indication: HYPERCHOLESTEROLAEMIA
     Dosage: DAILY DOSE:10MG
     Route: 048
     Dates: start: 20070509, end: 20070514
  2. AMLODIN [Concomitant]
     Indication: HYPERTENSION
     Route: 048
  3. NU LOTAN [Concomitant]
     Indication: HYPERTENSION
  4. ASPIRIN [Concomitant]
     Indication: ANGINA PECTORIS
     Route: 048
  5. RENIVACE [Concomitant]
     Indication: ANGINA PECTORIS
     Route: 048
     Dates: start: 20070509
  6. TICLOPIDINE HCL [Concomitant]
     Indication: ANGINA PECTORIS
     Route: 048
     Dates: start: 20070509
  7. GASTER [Concomitant]
     Indication: GASTRITIS
     Route: 048
     Dates: start: 20070509
  8. BUFFERIN [Concomitant]
     Indication: ANGINA PECTORIS
     Route: 048
     Dates: start: 20070509, end: 20070511

REACTIONS (1)
  - MUSCLE SPASMS [None]
